FAERS Safety Report 5676661-6 (Version None)
Quarter: 2008Q1

REPORT INFORMATION
  Report Type: 
  Country: None (occurrence: None)
  Receive Date: 20080324
  Receipt Date: 20080313
  Transmission Date: 20080703
  Serious: Yes (Hospitalization)
  Sender: FDA-Public Use
  Company Number: SE-WYE-G01247908

PATIENT
  Sex: Male

DRUGS (4)
  1. EFFEXOR [Suspect]
     Route: 048
  2. FELODIPINE [Suspect]
     Route: 048
  3. TRANDATE [Suspect]
  4. METOPROLOL TARTRATE [Suspect]
     Route: 048

REACTIONS (5)
  - CONGENITAL HEART VALVE DISORDER [None]
  - DRUG EXPOSURE DURING PREGNANCY [None]
  - HYPOTONIA NEONATAL [None]
  - LETHARGY [None]
  - UNRESPONSIVE TO STIMULI [None]
